FAERS Safety Report 17746370 (Version 1)
Quarter: 2020Q2

REPORT INFORMATION
  Report Type: Spontaneous
  Country: US (occurrence: US)
  Receive Date: 20200505
  Receipt Date: 20200505
  Transmission Date: 20200714
  Serious: No
  Sender: FDA-Public Use
  Company Number: US-ROCHE-2380941

PATIENT
  Sex: Female

DRUGS (18)
  1. DUONEB [Concomitant]
     Active Substance: ALBUTEROL SULFATE\IPRATROPIUM BROMIDE
  2. LOPRESSOR [Concomitant]
     Active Substance: METOPROLOL TARTRATE
  3. ESBRIET [Suspect]
     Active Substance: PIRFENIDONE
     Indication: INTERSTITIAL LUNG DISEASE
     Route: 048
  4. FLONASE [Concomitant]
     Active Substance: FLUTICASONE PROPIONATE
  5. ZOCOR [Concomitant]
     Active Substance: SIMVASTATIN
  6. ECOTRIN [Concomitant]
     Active Substance: ASPIRIN
  7. FISH OIL [Concomitant]
     Active Substance: FISH OIL
  8. NORVASC [Concomitant]
     Active Substance: AMLODIPINE BESYLATE
  9. POTASSIUM [Concomitant]
     Active Substance: POTASSIUM
  10. ROBITUSSIN DM [Concomitant]
     Active Substance: DEXTROMETHORPHAN HYDROBROMIDE\GUAIFENESIN
  11. XANAX [Concomitant]
     Active Substance: ALPRAZOLAM
  12. PROTONIX [Concomitant]
     Active Substance: PANTOPRAZOLE SODIUM
  13. OXAPROZIN. [Concomitant]
     Active Substance: OXAPROZIN
  14. TUDORZA PRESSAIR [Concomitant]
     Active Substance: ACLIDINIUM BROMIDE
  15. DULERA [Concomitant]
     Active Substance: FORMOTEROL FUMARATE DIHYDRATE\MOMETASONE FUROATE
  16. SYNTHROID [Concomitant]
     Active Substance: LEVOTHYROXINE SODIUM
  17. VASOTEC [ENALAPRILAT] [Concomitant]
     Active Substance: ENALAPRILAT
  18. PREDNISONE. [Concomitant]
     Active Substance: PREDNISONE

REACTIONS (1)
  - Tooth fracture [Unknown]
